FAERS Safety Report 22177300 (Version 1)
Quarter: 2023Q2

REPORT INFORMATION
  Report Type: Spontaneous
  Country: US (occurrence: None)
  Receive Date: 20230405
  Receipt Date: 20230405
  Transmission Date: 20230722
  Serious: Yes (unspecified)
  Sender: FDA-Public Use
  Company Number: None

PATIENT
  Age: 51 Year
  Sex: Female
  Weight: 117 kg

DRUGS (9)
  1. OZEMPIC [Suspect]
     Active Substance: SEMAGLUTIDE
     Indication: Diabetes mellitus
     Dosage: OTHER QUANTITY : 1 INJECTION(S);?OTHER FREQUENCY : ONCE A WEEK;?
     Route: 058
     Dates: start: 20230308, end: 20230317
  2. THYROID [Concomitant]
     Active Substance: LEVOTHYROXINE\LIOTHYRONINE
  3. UNSPECIFIED INGREDIENT [Concomitant]
     Active Substance: UNSPECIFIED INGREDIENT
  4. UNSPECIFIED INGREDIENT [Concomitant]
     Active Substance: UNSPECIFIED INGREDIENT
  5. VITAMINS [Concomitant]
     Active Substance: VITAMINS
  6. c [Concomitant]
  7. VINEGAR [Concomitant]
     Active Substance: ACETIC ACID
  8. BROCCOMAX [Concomitant]
  9. FISH OIL [Concomitant]
     Active Substance: FISH OIL

REACTIONS (11)
  - Hyperhidrosis [None]
  - Depressed level of consciousness [None]
  - Dehydration [None]
  - Sensory disturbance [None]
  - Back pain [None]
  - Chromaturia [None]
  - Hypertension [None]
  - Vascular access placement [None]
  - Palpitations [None]
  - Mental disorder [None]
  - Physical disability [None]

NARRATIVE: CASE EVENT DATE: 20230316
